FAERS Safety Report 21234544 (Version 2)
Quarter: 2022Q3

REPORT INFORMATION
  Report Type: Report from Study
  Country: AU (occurrence: AU)
  Receive Date: 20220820
  Receipt Date: 20220824
  Transmission Date: 20221027
  Serious: Yes (Death, Hospitalization, Other)
  Sender: FDA-Public Use
  Company Number: AU-ABBVIE-22K-008-4509666-00

PATIENT
  Age: 72 Year
  Sex: Male

DRUGS (2)
  1. CARBIDOPA\LEVODOPA [Suspect]
     Active Substance: CARBIDOPA\LEVODOPA
     Indication: Parkinson^s disease
     Route: 050
     Dates: start: 20200127, end: 20220815
  2. CARBIDOPA\LEVODOPA [Suspect]
     Active Substance: CARBIDOPA\LEVODOPA

REACTIONS (7)
  - Death [Fatal]
  - Laparotomy [Unknown]
  - Endotracheal intubation [Unknown]
  - Chest pain [Unknown]
  - Abdominal pain [Unknown]
  - Gastrointestinal procedural complication [Unknown]
  - Palliative care [Unknown]

NARRATIVE: CASE EVENT DATE: 20220801
